FAERS Safety Report 7715578-X (Version None)
Quarter: 2011Q3

REPORT INFORMATION
  Report Type: 
  Country: None (occurrence: None)
  Receive Date: 20110829
  Receipt Date: 20110823
  Transmission Date: 20111222
  Serious: Yes (Hospitalization, Other)
  Sender: FDA-Public Use
  Company Number: CN-ROCHE-764071

PATIENT
  Age: 37 Year
  Sex: Male

DRUGS (2)
  1. RIBAVARIN [Concomitant]
     Indication: HEPATITIS C
     Route: 048
     Dates: start: 20100205, end: 20110727
  2. PEGINTERFERON ALFA-2A [Suspect]
     Indication: HEPATITIS C
     Route: 058
     Dates: start: 20100205, end: 20110727

REACTIONS (2)
  - SPLENOMEGALY [None]
  - PLATELET COUNT DECREASED [None]
